FAERS Safety Report 23654509 (Version 2)
Quarter: 2024Q1

REPORT INFORMATION
  Report Type: Spontaneous
  Country: CH (occurrence: CH)
  Receive Date: 20240320
  Receipt Date: 20240325
  Transmission Date: 20240410
  Serious: Yes (Hospitalization, Other)
  Sender: FDA-Public Use
  Company Number: None

PATIENT
  Age: 56 Year
  Sex: Male

DRUGS (5)
  1. KEYTRUDA [Suspect]
     Active Substance: PEMBROLIZUMAB
     Indication: Renal cancer
     Dosage: UNK
     Dates: start: 20230811, end: 20240301
  2. LENVATINIB MESYLATE [Suspect]
     Active Substance: LENVATINIB MESYLATE
     Indication: Renal cancer
     Dosage: 10 MILLIGRAM
     Route: 048
     Dates: start: 20230811, end: 20240301
  3. ELIQUIS [Concomitant]
     Active Substance: APIXABAN
     Route: 048
  4. AMLODIPINE MESYLATE [Concomitant]
     Active Substance: AMLODIPINE MESYLATE
     Route: 048
  5. OLMESARTAN SANDOZ [Concomitant]
     Route: 048

REACTIONS (1)
  - Appendicitis [Recovered/Resolved]

NARRATIVE: CASE EVENT DATE: 20240303
